FAERS Safety Report 5401471-4 (Version None)
Quarter: 2007Q3

REPORT INFORMATION
  Report Type: 
  Country: None (occurrence: None)
  Receive Date: 20070731
  Receipt Date: 20070606
  Transmission Date: 20080115
  Serious: Yes (Other)
  Sender: FDA-Public Use
  Company Number: US-PURDUE-USA_2007_0028431

PATIENT
  Sex: Female

DRUGS (1)
  1. OXYCONTIN [Suspect]
     Indication: FRACTURE
     Dosage: UNK MG, UNK
     Route: 048
     Dates: start: 19991001, end: 20020801

REACTIONS (1)
  - RENAL FAILURE [None]
